FAERS Safety Report 4523767-0 (Version None)
Quarter: 2004Q4

REPORT INFORMATION
  Report Type: 
  Country: None (occurrence: None)
  Receive Date: 20041101
  Receipt Date: 20040720
  Transmission Date: 20050328
  Serious: Yes (Other)
  Sender: FDA-Public Use
  Company Number: HQWYE427126JUL04

PATIENT
  Age: 40 Year
  Sex: Female

DRUGS (3)
  1. PREMARIN [Suspect]
  2. PREMPHASE (CONJUGATED ESTROGENS/MEDRXYOPROGESTERONE ACETATE, TABLET, U [Suspect]
  3. PROVERA [Suspect]

REACTIONS (2)
  - MYOCARDIAL INFARCTION [None]
  - THROMBOSIS [None]
